FAERS Safety Report 7314254-5 (Version None)
Quarter: 2011Q1

REPORT INFORMATION
  Report Type: 
  Country: None (occurrence: None)
  Receive Date: 20110225
  Receipt Date: 20100624
  Transmission Date: 20110831
  Serious: No
  Sender: FDA-Public Use
  Company Number: US-MYLANLABS-2010S1011277

PATIENT
  Age: 17 Year
  Sex: Male

DRUGS (4)
  1. AMNESTEEM [Suspect]
     Route: 048
     Dates: start: 20100503, end: 20100601
  2. AMNESTEEM [Suspect]
     Route: 048
     Dates: start: 20100503, end: 20100601
  3. AMNESTEEM [Suspect]
     Route: 048
     Dates: start: 20100301, end: 20100409
  4. AMNESTEEM [Suspect]
     Indication: ACNE
     Route: 048
     Dates: start: 20100201, end: 20100409

REACTIONS (1)
  - BACK PAIN [None]
